FAERS Safety Report 10677926 (Version 1)
Quarter: 2014Q4

REPORT INFORMATION
  Report Type: Spontaneous
  Country: US (occurrence: US)
  Receive Date: 20141229
  Receipt Date: 20141229
  Transmission Date: 20150529
  Serious: Yes (Other)
  Sender: FDA-Public Use
  Company Number: US-BAYER-2014-190044

PATIENT
  Age: 21 Year
  Sex: Female

DRUGS (1)
  1. OCELLA [Suspect]
     Active Substance: DROSPIRENONE\ETHINYL ESTRADIOL
     Indication: MENSTRUAL CYCLE MANAGEMENT
     Dosage: UNK
     Dates: start: 2014

REACTIONS (11)
  - Mood swings [None]
  - Visual impairment [None]
  - Paraesthesia [None]
  - Headache [None]
  - Vitreous floaters [None]
  - Heart rate increased [None]
  - Migraine [None]
  - Hypoaesthesia [None]
  - Photopsia [None]
  - Anxiety [None]
  - Off label use [None]

NARRATIVE: CASE EVENT DATE: 2014
